FAERS Safety Report 24845411 (Version 8)
Quarter: 2025Q4

REPORT INFORMATION
  Report Type: Spontaneous
  Country: US (occurrence: US)
  Receive Date: 20250115
  Receipt Date: 20251119
  Transmission Date: 20260118
  Serious: No
  Sender: VERTEX
  Company Number: US-VERTEX PHARMACEUTICALS-2025-000462

PATIENT
  Age: 23 Year
  Sex: Male

DRUGS (3)
  1. TRIKAFTA [Interacting]
     Active Substance: ELEXACAFTOR\IVACAFTOR\TEZACAFTOR
     Indication: Cystic fibrosis
     Dosage: UNKNOWN DOSAGE REGIMEN
     Route: 048
  2. TRIKAFTA [Interacting]
     Active Substance: ELEXACAFTOR\IVACAFTOR\TEZACAFTOR
     Dosage: REDUCED DOSE; STOPPED BLUE TAB
     Route: 048
     Dates: end: 202510
  3. CAFFEINE [Interacting]
     Active Substance: CAFFEINE
     Indication: Product used for unknown indication
     Route: 065

REACTIONS (19)
  - Illness [Recovered/Resolved]
  - Pneumonia [Recovered/Resolved]
  - Apathy [Recovered/Resolved]
  - Feeling abnormal [Recovered/Resolved]
  - Flat affect [Recovered/Resolved]
  - Lethargy [Recovered/Resolved]
  - Somnolence [Recovered/Resolved]
  - Brain fog [Recovered/Resolved]
  - Drug interaction [Unknown]
  - Fatigue [Recovered/Resolved]
  - Dyspnoea [Unknown]
  - Hunger [Unknown]
  - Infection [Unknown]
  - Asthenia [Recovering/Resolving]
  - Food craving [Recovered/Resolved]
  - Lack of satiety [Recovering/Resolving]
  - Gastrooesophageal reflux disease [Recovered/Resolved]
  - Dyspepsia [Recovering/Resolving]
  - Depressed mood [Recovering/Resolving]
